FAERS Safety Report 23427140 (Version 1)
Quarter: 2024Q1

REPORT INFORMATION
  Report Type: Spontaneous
  Country: US (occurrence: None)
  Receive Date: 20240119
  Receipt Date: 20240119
  Transmission Date: 20240409
  Serious: Yes (Other)
  Sender: FDA-Public Use
  Company Number: None

PATIENT
  Age: 44 Year
  Sex: Female
  Weight: 54 kg

DRUGS (1)
  1. CLENPIQ [Suspect]
     Active Substance: ANHYDROUS CITRIC ACID\MAGNESIUM OXIDE\SODIUM PICOSULFATE
     Indication: Colonoscopy
     Dosage: OTHER QUANTITY : 175 BOTTLE;?OTHER FREQUENCY : SPLIT-DOSE PER PI;?
     Route: 048
     Dates: start: 20240118, end: 20240118

REACTIONS (2)
  - Syncope [None]
  - Orthostatic hypotension [None]

NARRATIVE: CASE EVENT DATE: 20240119
